FAERS Safety Report 10380178 (Version 1)
Quarter: 2014Q3

REPORT INFORMATION
  Report Type: Spontaneous
  Country: US (occurrence: US)
  Receive Date: 20140813
  Receipt Date: 20140813
  Transmission Date: 20150326
  Serious: Yes (Other)
  Sender: FDA-Public Use
  Company Number: US-BEH-2014044384

PATIENT
  Age: 30 Year
  Sex: Female

DRUGS (1)
  1. INTRAVENOUS IMMUNE GLOBULIN 5 %(OCTAPHARM) [Suspect]
     Active Substance: HUMAN IMMUNOGLOBULIN G
     Indication: AUTOIMMUNE DISORDER

REACTIONS (1)
  - Meningitis aseptic [Unknown]
